FAERS Safety Report 7359796-1 (Version None)
Quarter: 2011Q1

REPORT INFORMATION
  Report Type: 
  Country: None (occurrence: None)
  Receive Date: 20110317
  Receipt Date: 20110314
  Transmission Date: 20110831
  Serious: Yes (Hospitalization)
  Sender: FDA-Public Use
  Company Number: ES-PFIZER INC-2011056146

PATIENT
  Age: 61 Year
  Sex: Female

DRUGS (6)
  1. FENTANYL [Interacting]
     Indication: CANCER PAIN
     Dosage: UNK
     Route: 048
     Dates: start: 20081201
  2. SEVREDOL [Interacting]
     Indication: CANCER PAIN
     Dosage: 10 MG, 1X/DAY
     Dates: start: 20090629, end: 20100114
  3. CITALOPRAM HYDROBROMIDE [Interacting]
     Indication: DEPRESSION
     Dosage: 20 MG, 1X/DAY
     Route: 048
     Dates: start: 20091023
  4. SIMVASTATIN [Concomitant]
     Indication: HYPERLIPIDAEMIA
     Dosage: 10 MG, 1X/DAY
     Route: 048
  5. TRANKIMAZIN [Suspect]
     Dosage: 1.5 MG, 1X/DAY
     Route: 048
     Dates: start: 20090101
  6. EUTIROX [Concomitant]
     Indication: HYPOTHYROIDISM
     Dosage: 150 UG, UNK
     Route: 048

REACTIONS (4)
  - CONFUSIONAL STATE [None]
  - DRUG INTERACTION [None]
  - AMNESIA [None]
  - COORDINATION ABNORMAL [None]
